FAERS Safety Report 4519486-7 (Version None)
Quarter: 2004Q4

REPORT INFORMATION
  Report Type: 
  Country: None (occurrence: None)
  Receive Date: 20041202
  Receipt Date: 20041122
  Transmission Date: 20050328
  Serious: Yes (Hospitalization)
  Sender: FDA-Public Use
  Company Number: 2004PK02012

PATIENT
  Age: 63 Year
  Sex: Male
  Weight: 103 kg

DRUGS (8)
  1. GEFITINIB [Suspect]
     Indication: PROSTATIC SPECIFIC ANTIGEN INCREASED
     Dosage: 500 MG DAILY PO
     Route: 048
     Dates: start: 20040706, end: 20041102
  2. GEFITINIB [Suspect]
     Indication: PROSTATIC SPECIFIC ANTIGEN INCREASED
     Dosage: 500 MG DAILY PO
     Route: 048
     Dates: start: 20041117
  3. NEXIUM [Concomitant]
  4. CAPTO COMP [Concomitant]
  5. SULPIRID [Concomitant]
  6. DOXY-M [Concomitant]
  7. PLIBEX [Concomitant]
  8. CLARITIN [Concomitant]

REACTIONS (1)
  - ECZEMA ASTEATOTIC [None]
